FAERS Safety Report 4380009-7 (Version None)
Quarter: 2004Q2

REPORT INFORMATION
  Report Type: 
  Country: None (occurrence: None)
  Receive Date: 20040614
  Receipt Date: 20040601
  Transmission Date: 20050107
  Serious: No
  Sender: FDA-Public Use
  Company Number: 04H-167-0263119-00

PATIENT
  Sex: 0

DRUGS (4)
  1. HEPARIN SODIUM [Suspect]
     Indication: ANTICOAGULANT THERAPY
     Dosage: WGT-DEPENDENT, PERI-OOPERATIVE + 3 X DAY, SUBCUTANEOUS
     Route: 058
  2. PREDNISOLONE [Concomitant]
  3. CYCLOSPORINE [Concomitant]
  4. AZATHIOPRINE [Concomitant]

REACTIONS (3)
  - STENT OCCLUSION [None]
  - SURGICAL PROCEDURE REPEATED [None]
  - THROMBOSIS [None]
